FAERS Safety Report 6291244-5 (Version None)
Quarter: 2009Q3

REPORT INFORMATION
  Report Type: 
  Country: None (occurrence: None)
  Receive Date: 20090729
  Receipt Date: 20090729
  Transmission Date: 20100115
  Serious: Yes (Life-Threatening, Hospitalization)
  Sender: FDA-Public Use
  Company Number: None

PATIENT
  Age: 76 Year
  Sex: Male
  Weight: 81.6475 kg

DRUGS (1)
  1. GEMFIBROZIL [Suspect]
     Indication: BLOOD CHOLESTEROL
     Dosage: 1 TABLET TWICE A DAY PO
     Route: 048
     Dates: start: 20090625, end: 20090718

REACTIONS (4)
  - ABASIA [None]
  - BLOOD POTASSIUM INCREASED [None]
  - RENAL FAILURE [None]
  - RHABDOMYOLYSIS [None]
